FAERS Safety Report 11838608 (Version 1)
Quarter: 2015Q4

REPORT INFORMATION
  Report Type: Spontaneous
  Country: US (occurrence: US)
  Receive Date: 20151215
  Receipt Date: 20151215
  Transmission Date: 20160305
  Serious: No
  Sender: FDA-Public Use
  Company Number: US-SA-2015SA057861

PATIENT
  Age: 63 Year
  Sex: Female
  Weight: 72.5 kg

DRUGS (6)
  1. DICLOXACILLIN [Concomitant]
     Active Substance: DICLOXACILLIN
     Dosage: STRENGTH: 250 MG
  2. VITAMIN D3 [Concomitant]
     Active Substance: CHOLECALCIFEROL
     Dosage: STRENGTH: 1000 UNIT
  3. THYROGEN [Suspect]
     Active Substance: THYROTROPIN ALFA
     Indication: THYROID CANCER
     Dosage: EVERY 24 HOURS FOR TWO DOSES
     Route: 030
     Dates: start: 2007, end: 2007
  4. CRESTOR [Concomitant]
     Active Substance: ROSUVASTATIN CALCIUM
     Dosage: STRENGTH: 10 MG
  5. COENZYME Q10 [Concomitant]
     Active Substance: UBIDECARENONE
     Dosage: STRENGTH: 10 MG
  6. SYNTHROID [Concomitant]
     Active Substance: LEVOTHYROXINE SODIUM
     Dosage: STRENGTH: 100 MCG

REACTIONS (2)
  - Infection [Not Recovered/Not Resolved]
  - Furuncle [Not Recovered/Not Resolved]

NARRATIVE: CASE EVENT DATE: 20150427
